FAERS Safety Report 20945654 (Version 1)
Quarter: 2022Q2

REPORT INFORMATION
  Report Type: Spontaneous
  Country: US (occurrence: None)
  Receive Date: 20220609
  Receipt Date: 20220609
  Transmission Date: 20220721
  Serious: Yes (Other)
  Sender: FDA-Public Use
  Company Number: None

PATIENT
  Sex: Male

DRUGS (11)
  1. HUMIRA [Suspect]
     Active Substance: ADALIMUMAB
     Dosage: OTHER QUANTITY : 40 MG/0.4ML;?FREQUENCY : EVERY OTHER WEEK;?
     Route: 058
     Dates: start: 20220525
  2. AMLODIPINE TAB [Concomitant]
  3. ATORVASTATIN [Concomitant]
     Active Substance: ATORVASTATIN
  4. CELECOXIB CAP [Concomitant]
  5. ESZOPICLONE TAB [Concomitant]
  6. FLUTICASONE SPR [Concomitant]
  7. HUMIRA CF PEN-CD/UC/HS START [Concomitant]
  8. HYDROCHLOROT CAP [Concomitant]
  9. IRBESARTAN [Concomitant]
     Active Substance: IRBESARTAN
  10. MESALAMINE TAB [Concomitant]
  11. MONTELUKAST SODIUM [Concomitant]
     Active Substance: MONTELUKAST SODIUM

REACTIONS (2)
  - Infection [None]
  - Therapy interrupted [None]
